FAERS Safety Report 8439365-2 (Version None)
Quarter: 2012Q2

REPORT INFORMATION
  Report Type: 
  Country: None (occurrence: None)
  Receive Date: 20120615
  Receipt Date: 20120612
  Transmission Date: 20120825
  Serious: Yes (Other)
  Sender: FDA-Public Use
  Company Number: PHEH2012US011381

PATIENT
  Sex: Female

DRUGS (26)
  1. DIOVAN [Suspect]
     Dosage: 160 MG, UNK
  2. BENZONATATE [Concomitant]
  3. SYMBICORT [Concomitant]
  4. IBUPROFEN [Concomitant]
  5. TUSSIONEX [Concomitant]
  6. ALBUTEROL SULATE [Concomitant]
  7. SINGULAIR [Concomitant]
  8. VITAMIN D [Concomitant]
  9. PREVACID [Concomitant]
  10. XYZAL [Concomitant]
  11. DIOVAN [Suspect]
     Dosage: 80 MG, UNK
  12. PATANOL [Concomitant]
  13. MIRAPEX [Concomitant]
  14. ZANTAC [Concomitant]
  15. SKELAXIN [Concomitant]
  16. BUSPAR [Concomitant]
  17. VITAMIN B-12 [Concomitant]
  18. XOLAIR [Concomitant]
  19. XANAX [Concomitant]
  20. COMBIVENT [Concomitant]
  21. OXYGEN [Concomitant]
  22. SPIRIVA [Concomitant]
  23. DALIRESP [Suspect]
  24. ATROVENT [Concomitant]
  25. ZOLOFT [Concomitant]
  26. NORCO [Concomitant]

REACTIONS (16)
  - STRESS [None]
  - DIARRHOEA [None]
  - ASTHMA [None]
  - DEPRESSION [None]
  - NAUSEA [None]
  - BLOOD PRESSURE ABNORMAL [None]
  - MALAISE [None]
  - RESTLESS LEGS SYNDROME [None]
  - VOMITING [None]
  - GASTROOESOPHAGEAL REFLUX DISEASE [None]
  - COUGH [None]
  - BRONCHITIS [None]
  - HYPERSENSITIVITY [None]
  - FATIGUE [None]
  - DIABETES MELLITUS [None]
  - WEIGHT DECREASED [None]
